FAERS Safety Report 6496544-1 (Version None)
Quarter: 2009Q4

REPORT INFORMATION
  Report Type: 
  Country: None (occurrence: None)
  Receive Date: 20091210
  Receipt Date: 20091124
  Transmission Date: 20100525
  Serious: Yes (Life-Threatening, Hospitalization)
  Sender: FDA-Public Use
  Company Number: APP200900833

PATIENT
  Age: 22 Year
  Sex: Male

DRUGS (4)
  1. METHYLPREDNISOLONE SODIUM SUCCINATE [Suspect]
     Indication: LIVER TRANSPLANT
     Dosage: INTRAVENOUS
     Route: 042
  2. AZATHIOPRINE [Suspect]
     Indication: LIVER TRANSPLANT
  3. TACROLIMUS [Suspect]
     Indication: LIVER TRANSPLANT
  4. MYCOPHENOLATE MOFETIL [Suspect]
     Indication: LIVER TRANSPLANT

REACTIONS (7)
  - HAEMODIALYSIS [None]
  - HEPATIC STEATOSIS [None]
  - LIVER TRANSPLANT [None]
  - PANCREATITIS NECROTISING [None]
  - SEPSIS [None]
  - TACHYCARDIA [None]
  - TRANSPLANT REJECTION [None]
